FAERS Safety Report 20594707 (Version 3)
Quarter: 2022Q4

REPORT INFORMATION
  Report Type: Report from Study
  Country: CA (occurrence: CA)
  Receive Date: 20220315
  Receipt Date: 20221103
  Transmission Date: 20230113
  Serious: Yes (Other)
  Sender: FDA-Public Use
  Company Number: CA-JNJFOC-20211036902

PATIENT
  Age: 55 Year
  Sex: Female
  Weight: 61 kg

DRUGS (4)
  1. REMICADE [Suspect]
     Active Substance: INFLIXIMAB
     Indication: Rheumatoid arthritis
     Dosage: START DATE REPORTED IN THE FOLLOW UP REPORT WAS 15-APR-2015
     Route: 042
     Dates: start: 20140630
  2. COVID-19 VACCINE NOS [Suspect]
     Active Substance: COVID-19 VACCINE NOS
     Indication: COVID-19 prophylaxis
     Dosage: 2ND VACCINE
     Route: 065
     Dates: start: 20210729
  3. METHOTREXATE [Suspect]
     Active Substance: METHOTREXATE
     Indication: Product used for unknown indication
     Route: 065
     Dates: start: 20220626, end: 2022
  4. METHOTREXATE [Suspect]
     Active Substance: METHOTREXATE
     Route: 065
     Dates: start: 2022, end: 20221028

REACTIONS (21)
  - Pneumonia [Recovered/Resolved]
  - Pulmonary congestion [Not Recovered/Not Resolved]
  - Rheumatoid arthritis [Unknown]
  - Nasopharyngitis [Unknown]
  - Lower respiratory tract infection [Unknown]
  - Rhinorrhoea [Unknown]
  - Illness [Not Recovered/Not Resolved]
  - Sinus disorder [Unknown]
  - Dysphonia [Unknown]
  - Sputum discoloured [Unknown]
  - Pneumonitis [Unknown]
  - Skin discolouration [Unknown]
  - Fear [Unknown]
  - Post-acute COVID-19 syndrome [Unknown]
  - Loss of personal independence in daily activities [Unknown]
  - Cough [Recovering/Resolving]
  - COVID-19 [Unknown]
  - Head discomfort [Not Recovered/Not Resolved]
  - Diarrhoea [Not Recovered/Not Resolved]
  - Body temperature increased [Not Recovered/Not Resolved]
  - Off label use [Unknown]

NARRATIVE: CASE EVENT DATE: 20140630
